FAERS Safety Report 23308427 (Version 1)
Quarter: 2023Q4

REPORT INFORMATION
  Report Type: Report from Study
  Country: KR (occurrence: KR)
  Receive Date: 20231218
  Receipt Date: 20231218
  Transmission Date: 20240109
  Serious: Yes (Hospitalization)
  Sender: FDA-Public Use
  Company Number: KR-PFIZER INC-202300433786

PATIENT
  Age: 63 Year
  Sex: Male
  Weight: 97 kg

DRUGS (15)
  1. TOVIAZ [Suspect]
     Active Substance: FESOTERODINE FUMARATE
     Indication: Bladder disorder
     Dosage: 4 MG
     Route: 048
     Dates: start: 20190401
  2. MIRABEGRON [Suspect]
     Active Substance: MIRABEGRON
     Indication: Bladder disorder
     Dosage: 50 MG
     Route: 048
     Dates: start: 20190104, end: 20190201
  3. NICORANDIL [Concomitant]
     Active Substance: NICORANDIL
     Indication: Essential hypertension
     Dosage: 2 DF
     Route: 048
     Dates: start: 20180425
  4. FINASTERIDE [Concomitant]
     Active Substance: FINASTERIDE
     Indication: Prostatic disorder
     Dosage: 1 DF
     Route: 048
     Dates: start: 20190201
  5. GLIMEPIRIDE [Concomitant]
     Active Substance: GLIMEPIRIDE
     Indication: Diabetes mellitus
     Dosage: 1 DF
     Route: 048
     Dates: start: 20161125
  6. HYDROCHLOROTHIAZIDE\LOSARTAN POTASSIUM [Concomitant]
     Active Substance: HYDROCHLOROTHIAZIDE\LOSARTAN POTASSIUM
     Indication: Essential hypertension
     Dosage: 1 DF
     Route: 048
     Dates: start: 20180427
  7. ASPIRIN [Concomitant]
     Active Substance: ASPIRIN
     Indication: Angina unstable
     Dosage: 1 DF
     Route: 048
     Dates: start: 2016
  8. ALFUZOSIN HYDROCHLORIDE [Concomitant]
     Active Substance: ALFUZOSIN HYDROCHLORIDE
     Indication: Prostatic disorder
     Dosage: 1 DF
     Route: 048
     Dates: start: 20190104, end: 20190131
  9. METFORMIN HYDROCHLORIDE [Concomitant]
     Active Substance: METFORMIN HYDROCHLORIDE
     Indication: Diabetes mellitus
     Dosage: 1 DF
     Route: 048
     Dates: start: 20161125
  10. TAMSULOSIN HYDROCHLORIDE [Concomitant]
     Active Substance: TAMSULOSIN HYDROCHLORIDE
     Indication: Prostatic disorder
     Dosage: 1 DF
     Route: 048
     Dates: start: 20190718
  11. CANDESARTAN CILEXETIL [Concomitant]
     Active Substance: CANDESARTAN CILEXETIL
     Indication: Essential hypertension
     Dosage: 1 DF
     Route: 048
     Dates: start: 20180913
  12. DUTASTERIDE [Concomitant]
     Active Substance: DUTASTERIDE
     Indication: Prostatic disorder
     Dosage: 1 DF
     Route: 048
     Dates: start: 20190104, end: 20190131
  13. DAPAGLIFLOZIN PROPANEDIOL [Concomitant]
     Active Substance: DAPAGLIFLOZIN PROPANEDIOL
     Indication: Diabetes mellitus
     Dosage: 1 DF
     Route: 048
     Dates: start: 20161125
  14. EZETIMIBE/ROSUVASTATIN CALCIUM [Concomitant]
     Indication: Hyperlipidaemia
     Dosage: 1 DF
     Route: 048
     Dates: start: 20180509
  15. TAMSULOSIN HYDROCHLORIDE [Concomitant]
     Active Substance: TAMSULOSIN HYDROCHLORIDE
     Indication: Prostatic disorder
     Dosage: 1 DF
     Route: 048
     Dates: start: 20190201, end: 20190718

REACTIONS (1)
  - Angina unstable [Recovered/Resolved]

NARRATIVE: CASE EVENT DATE: 20190708
